FAERS Safety Report 18362962 (Version 1)
Quarter: 2020Q4

REPORT INFORMATION
  Report Type: Spontaneous
  Country: US (occurrence: US)
  Receive Date: 20201008
  Receipt Date: 20201008
  Transmission Date: 20210114
  Serious: No
  Sender: FDA-Public Use
  Company Number: US-FRESENIUS MEDICAL CARE RENAL THERAPIES GROUP-FMC-2010-001164

PATIENT
  Age: 71 Year
  Sex: Female
  Weight: 53 kg

DRUGS (17)
  1. DELFLEX WITH DEXTROSE 2.5% LOW MAGNESIUM LOW CALCIUM [Suspect]
     Active Substance: CALCIUM CHLORIDE\DEXTROSE\MAGNESIUM CHLORIDE\SODIUM CHLORIDE\SODIUM LACTATE
     Indication: END STAGE RENAL DISEASE
     Dosage: FILL VOLUME 1500 ML, 4 EXCHANGES, NO LAST FILL, NO DAYTIME EXCHANGE, DWELL TIME 2.0 HOURS, SINCE 03/
     Route: 033
  2. BUMETANIDE. [Concomitant]
     Active Substance: BUMETANIDE
  3. HYDRALAZINE [Concomitant]
     Active Substance: HYDRALAZINE HYDROCHLORIDE
  4. MIRALAX [Concomitant]
     Active Substance: POLYETHYLENE GLYCOL 3350
  5. ALPHAGAN P [Concomitant]
     Active Substance: BRIMONIDINE TARTRATE
  6. GENTAMYCIN [Concomitant]
     Active Substance: GENTAMICIN
  7. NIFEDIPINE. [Concomitant]
     Active Substance: NIFEDIPINE
  8. VITAMIN D3 [Concomitant]
     Active Substance: CHOLECALCIFEROL
  9. DELFLEX WITH DEXTROSE 1.5% LOW MAGNESIUM LOW CALCIUM [Suspect]
     Active Substance: CALCIUM CHLORIDE\DEXTROSE\MAGNESIUM CHLORIDE\SODIUM CHLORIDE\SODIUM LACTATE
     Indication: END STAGE RENAL DISEASE
     Dosage: FILL VOLUME 1500 ML, 4 EXCHANGES, NO LAST FILL, NO DAYTIME EXCHANGE, DWELL TIME 2.0 HOURS, SINCE 03/
     Route: 033
  10. COLACE [Concomitant]
     Active Substance: DOCUSATE SODIUM
  11. LOPRESSOR [Concomitant]
     Active Substance: METOPROLOL TARTRATE
  12. DELFLEX WITH DEXTROSE 4.25% LOW MAGNESIUM LOW CALCIUM [Suspect]
     Active Substance: CALCIUM CHLORIDE\DEXTROSE\MAGNESIUM CHLORIDE\SODIUM CHLORIDE\SODIUM LACTATE
     Indication: END STAGE RENAL DISEASE
     Dosage: FILL VOLUME 1500 ML, 4 EXCHANGES, NO LAST FILL, NO DAYTIME EXCHANGE, DWELL TIME 2.0 HOURS, SINCE 03/
     Route: 033
  13. NYSTATIN. [Concomitant]
     Active Substance: NYSTATIN
  14. LANTHANUM [Concomitant]
     Active Substance: LANTHANUM
  15. BENICAR [Concomitant]
     Active Substance: OLMESARTAN MEDOXOMIL
  16. LACTULOSE. [Concomitant]
     Active Substance: LACTULOSE
  17. LANTUS [Concomitant]
     Active Substance: INSULIN GLARGINE

REACTIONS (4)
  - Peripheral swelling [Recovering/Resolving]
  - Fluid overload [Unknown]
  - Hypertension [Recovered/Resolved]
  - Abdominal distension [Recovered/Resolved]
